FAERS Safety Report 19866301 (Version 1)
Quarter: 2021Q3

REPORT INFORMATION
  Report Type: Spontaneous
  Country: CA (occurrence: CA)
  Receive Date: 20210921
  Receipt Date: 20210921
  Transmission Date: 20211014
  Serious: Yes (Other)
  Sender: FDA-Public Use
  Company Number: CA-TAKEDA-2021TUS057423

PATIENT
  Age: 40 Year
  Sex: Male
  Weight: 54 kg

DRUGS (9)
  1. LACTULOSE. [Concomitant]
     Active Substance: LACTULOSE
     Route: 065
  2. ACETAMINOPHEN. [Concomitant]
     Active Substance: ACETAMINOPHEN
     Route: 065
  3. CALCITRIOL. [Concomitant]
     Active Substance: CALCITRIOL
     Route: 065
  4. ZOPICLONE [Concomitant]
     Active Substance: ZOPICLONE
     Route: 065
  5. ALIMEMAZINE TARTRATE [Concomitant]
     Active Substance: TRIMEPRAZINE
     Route: 065
  6. AMLODIPINE AND TELMISARTAN [Concomitant]
     Active Substance: AMLODIPINE\TELMISARTAN
     Route: 065
  7. ESCITALOPRAM [Concomitant]
     Active Substance: ESCITALOPRAM OXALATE
     Route: 065
  8. FOSRENOL [Suspect]
     Active Substance: LANTHANUM CARBONATE
     Indication: BLOOD PHOSPHORUS ABNORMAL
     Dosage: 2250 MILLIGRAM
     Route: 048
  9. BISACODYL. [Concomitant]
     Active Substance: BISACODYL
     Route: 065

REACTIONS (2)
  - Blood phosphorus increased [Recovering/Resolving]
  - Pruritus [Recovering/Resolving]
